FAERS Safety Report 8927468 (Version 2)
Quarter: 2013Q1

REPORT INFORMATION
  Report Type: Other
  Country: GB (occurrence: IT)
  Receive Date: 20121127
  Receipt Date: 20130109
  Transmission Date: 20140127
  Serious: Yes (Life-Threatening)
  Sender: FDA-Public Use
  Company Number: GB-WATSON-2012-19973

PATIENT
  Age: 46 Year
  Sex: Male

DRUGS (4)
  1. GEMCITABINE [Suspect]
     Indication: NON-HODGKIN^S LYMPHOMA
     Dosage: 1600 MG, UNKNOWN
     Route: 042
     Dates: start: 20121022, end: 20121025
  2. VINORELBINE [Suspect]
     Indication: NON-HODGKIN^S LYMPHOMA
     Dosage: 40 MG, UNKNOWN
     Route: 042
     Dates: start: 20121022, end: 20121022
  3. ALOXI [Suspect]
     Indication: NON-HODGKIN^S LYMPHOMA
     Dosage: 1 DF, UNKNOWN
     Route: 042
     Dates: start: 20121022, end: 20121025
  4. HOLOXAN [Suspect]
     Indication: NON-HODGKIN^S LYMPHOMA
     Dosage: 300 MG, UNKNOWN
     Route: 042
     Dates: start: 20121022, end: 20121025

REACTIONS (1)
  - Toxic epidermal necrolysis [Unknown]
